FAERS Safety Report 13009095 (Version 9)
Quarter: 2020Q1

REPORT INFORMATION
  Report Type: Spontaneous
  Country: US (occurrence: US)
  Receive Date: 20161208
  Receipt Date: 20200319
  Transmission Date: 20200409
  Serious: Yes (Death, Hospitalization, Other)
  Sender: FDA-Public Use
  Company Number: US-ACTELION-A-US2016-146662

PATIENT
  Age: 81 Year
  Sex: Female
  Weight: 91.16 kg

DRUGS (6)
  1. AMBRISENTAN [Concomitant]
     Active Substance: AMBRISENTAN
  2. LETAIRIS [Concomitant]
     Active Substance: AMBRISENTAN
  3. ELIQUIS [Concomitant]
     Active Substance: APIXABAN
  4. UPTRAVI [Suspect]
     Active Substance: SELEXIPAG
     Indication: PULMONARY ARTERIAL HYPERTENSION
     Dosage: 600 MCG, BID
     Route: 048
     Dates: start: 2016
  5. UPTRAVI [Suspect]
     Active Substance: SELEXIPAG
     Dosage: 1200 MCG, BID
     Route: 048
  6. UPTRAVI [Suspect]
     Active Substance: SELEXIPAG
     Dosage: 1600 MCG, BID
     Route: 048
     Dates: start: 20160603

REACTIONS (11)
  - Flushing [Unknown]
  - Rash [Unknown]
  - Ear discomfort [Unknown]
  - Dyspnoea [Unknown]
  - Hospitalisation [Unknown]
  - Death [Fatal]
  - Spinal fracture [Unknown]
  - Weight decreased [Unknown]
  - Upper limb fracture [Unknown]
  - Nasal congestion [Unknown]
  - Insomnia [Unknown]

NARRATIVE: CASE EVENT DATE: 20200301
